FAERS Safety Report 8307438-0 (Version None)
Quarter: 2012Q2

REPORT INFORMATION
  Report Type: 
  Country: None (occurrence: None)
  Receive Date: 20120424
  Receipt Date: 20120417
  Transmission Date: 20120825
  Serious: Yes (Other)
  Sender: FDA-Public Use
  Company Number: PHHY2012CA023632

PATIENT
  Sex: Female
  Weight: 72 kg

DRUGS (4)
  1. ZOLEDRONOC ACID [Suspect]
     Route: 042
     Dates: start: 20111104
  2. VITAMIN D [Concomitant]
     Dosage: 800 UKN, UNK
     Dates: start: 20080725
  3. ZOLEDRONOC ACID [Suspect]
     Indication: OSTEOPOROSIS
     Dosage: 5 MG, YEARLY
     Route: 042
     Dates: start: 20101029
  4. CALCIUM [Concomitant]
     Dosage: 1000 UKN, UNK
     Dates: start: 20080725

REACTIONS (2)
  - ACCIDENT [None]
  - FOOT FRACTURE [None]
